FAERS Safety Report 21311742 (Version 2)
Quarter: 2024Q3

REPORT INFORMATION
  Report Type: Spontaneous
  Country: US (occurrence: None)
  Receive Date: 20220909
  Receipt Date: 20240906
  Transmission Date: 20241016
  Serious: No
  Sender: DOMPE FARMACEUTICI
  Company Number: US-ARIS GLOBAL-202203-0381

PATIENT
  Age: 85 Year
  Sex: Male
  Weight: 72.57 kg

DRUGS (29)
  1. OXERVATE [Suspect]
     Active Substance: CENEGERMIN-BKBJ
     Indication: Neurotrophic keratopathy
     Route: 047
     Dates: start: 20220208, end: 20220406
  2. OXERVATE [Suspect]
     Active Substance: CENEGERMIN-BKBJ
     Route: 047
     Dates: start: 20240122
  3. OXERVATE [Suspect]
     Active Substance: CENEGERMIN-BKBJ
  4. SYSTANE (HYPROMELLOSE 2910 (4000 MPA.S)) [Concomitant]
     Active Substance: HYPROMELLOSE 2910 (4000 MPA.S)
     Dosage: 0.3 % -0.4% DROPS GEL
  5. RESTASIS [Concomitant]
     Active Substance: CYCLOSPORINE
  6. VALACYCLOVIR [Concomitant]
     Active Substance: VALACYCLOVIR HYDROCHLORIDE
  7. DOXYCYCLINE HYCLATE [Concomitant]
     Active Substance: DOXYCYCLINE HYCLATE
  8. VITAMIN C [Concomitant]
     Active Substance: ASCORBIC ACID
  9. GABAPENTIN [Concomitant]
     Active Substance: GABAPENTIN
  10. ZYRTEC [Concomitant]
     Active Substance: CETIRIZINE HYDROCHLORIDE
  11. ISOSORBIDE DINITRATE [Concomitant]
     Active Substance: ISOSORBIDE DINITRATE
  12. FUROSEMIDE [Concomitant]
     Active Substance: FUROSEMIDE
  13. PRAVASTATIN SODIUM [Concomitant]
     Active Substance: PRAVASTATIN SODIUM
  14. PANTOPRAZOLE SODIUM [Concomitant]
     Active Substance: PANTOPRAZOLE SODIUM
     Dosage: DELAYED RELEASE.
  15. ALLOPURINOL [Concomitant]
     Active Substance: ALLOPURINOL
  16. CARVEDILOL [Concomitant]
     Active Substance: CARVEDILOL
  17. TRAZODONE HCL [Concomitant]
     Active Substance: TRAZODONE HYDROCHLORIDE
  18. LOSARTAN POTASSIUM [Concomitant]
     Active Substance: LOSARTAN POTASSIUM
  19. DORZOLAMIDE\TIMOLOL [Concomitant]
     Active Substance: DORZOLAMIDE\TIMOLOL
  20. LATANOPROST [Concomitant]
     Active Substance: LATANOPROST
  21. INVELTYS [Concomitant]
     Active Substance: LOTEPREDNOL ETABONATE
  22. VITAMIN D3 [Concomitant]
     Active Substance: CHOLECALCIFEROL
  23. NYSTATIN [Concomitant]
     Active Substance: NYSTATIN
  24. LEFLUNOMIDE [Concomitant]
     Active Substance: LEFLUNOMIDE
  25. FAMOTIDINE [Concomitant]
     Active Substance: FAMOTIDINE
  26. NITROGLYCERIN [Concomitant]
     Active Substance: NITROGLYCERIN
     Dosage: SUBLINGUAL
  27. ISOSORBIDE DINITRATE [Concomitant]
     Active Substance: ISOSORBIDE DINITRATE
  28. ALLOPURINOL [Concomitant]
     Active Substance: ALLOPURINOL
  29. ASPIRIN [Concomitant]
     Active Substance: ASPIRIN

REACTIONS (7)
  - Photophobia [Unknown]
  - Headache [Unknown]
  - Periorbital pain [Unknown]
  - Ocular discomfort [Unknown]
  - Eye pain [Unknown]
  - Visual acuity reduced [Unknown]
  - Vision blurred [Unknown]

NARRATIVE: CASE EVENT DATE: 20240101
